FAERS Safety Report 8763751 (Version 1)
Quarter: 2012Q4

REPORT INFORMATION
  Report Type: Spontaneous
  Country: US (occurrence: None)
  Receive Date: 20120828
  Receipt Date: 20120828
  Transmission Date: 20130627
  Serious: Yes (Hospitalization)
  Sender: FDA-Public Use
  Company Number: 2012-0703

PATIENT
  Age: 60 Year
  Sex: Female

DRUGS (2)
  1. KYPROLIS [Suspect]
     Indication: MULTIPLE MYELOMA
     Dates: start: 20120809
  2. INSULIN NOS [Concomitant]

REACTIONS (2)
  - Platelet count decreased [None]
  - Rectal haemorrhage [None]
